FAERS Safety Report 9133274 (Version 2)
Quarter: 2013Q2

REPORT INFORMATION
  Report Type: Spontaneous
  Country: FR (occurrence: FR)
  Receive Date: 20130301
  Receipt Date: 20130424
  Transmission Date: 20140414
  Serious: Yes (Hospitalization)
  Sender: FDA-Public Use
  Company Number: FR-ROCHE-1196559

PATIENT
  Age: 80 Year
  Sex: Female

DRUGS (2)
  1. ROCEPHINE [Suspect]
     Indication: PRODUCT USED FOR UNKNOWN INDICATION
     Dosage: INJECTABLE SOLUTION
     Route: 030
     Dates: start: 20130210, end: 20130215
  2. RIFINAH [Suspect]
     Indication: TUBERCULOSIS
     Dosage: 300 MG/150 MG
     Route: 048
     Dates: start: 20130105, end: 20130210

REACTIONS (3)
  - Hepatitis [Recovering/Resolving]
  - Rash morbilliform [Recovering/Resolving]
  - Prothrombin time ratio decreased [Recovered/Resolved]
